FAERS Safety Report 6348760-7 (Version None)
Quarter: 2009Q3

REPORT INFORMATION
  Report Type: 
  Country: None (occurrence: None)
  Receive Date: 20090911
  Receipt Date: 20090907
  Transmission Date: 20100115
  Serious: Yes (Life-Threatening)
  Sender: FDA-Public Use
  Company Number: JP-ASTRAZENECA-2009SE11627

PATIENT
  Age: 77 Year
  Sex: Male

DRUGS (9)
  1. ECARD [Suspect]
     Indication: HYPERTENSION
     Route: 048
  2. RIZE [Concomitant]
     Route: 048
  3. GASTER [Concomitant]
     Route: 065
  4. STROCAIN [Concomitant]
     Route: 048
  5. AZUNOL [Concomitant]
     Route: 048
  6. POTASSIUM GLUCONATE TAB [Concomitant]
     Route: 048
  7. PAXIL [Concomitant]
     Route: 048
  8. LIVALO [Concomitant]
     Route: 048
  9. ATELEC [Concomitant]
     Route: 048

REACTIONS (2)
  - CARDIO-RESPIRATORY ARREST [None]
  - HYPONATRAEMIA [None]
